FAERS Safety Report 5975891-3 (Version None)
Quarter: 2008Q4

REPORT INFORMATION
  Report Type: 
  Country: None (occurrence: None)
  Receive Date: 20081202
  Receipt Date: 20081126
  Transmission Date: 20090506
  Serious: Yes (Disabling)
  Sender: FDA-Public Use
  Company Number: B0548578A

PATIENT
  Age: 47 Year
  Sex: Male

DRUGS (2)
  1. AVANDIA [Suspect]
     Route: 048
     Dates: start: 20080910, end: 20081015
  2. XENICAL [Concomitant]
     Indication: DRUG USE FOR UNKNOWN INDICATION
     Route: 065

REACTIONS (6)
  - ABDOMINAL DISTENSION [None]
  - FLUID RETENTION [None]
  - OEDEMA [None]
  - TUNNEL VISION [None]
  - VISUAL IMPAIRMENT [None]
  - WEIGHT INCREASED [None]
